FAERS Safety Report 10014127 (Version 2)
Quarter: 2014Q2

REPORT INFORMATION
  Report Type: Spontaneous
  Country: US (occurrence: US)
  Receive Date: 20140317
  Receipt Date: 20140410
  Transmission Date: 20141212
  Serious: Yes (Other)
  Sender: FDA-Public Use
  Company Number: US-BIOGENIDEC-2014BI022674

PATIENT
  Sex: Female
  Weight: 110 kg

DRUGS (14)
  1. AVONEX [Suspect]
     Indication: MULTIPLE SCLEROSIS
     Route: 030
     Dates: start: 20100429, end: 20131122
  2. AVONEX [Suspect]
     Indication: MULTIPLE SCLEROSIS
     Route: 030
     Dates: start: 20140305
  3. TECFIDERA [Concomitant]
     Indication: MULTIPLE SCLEROSIS
     Route: 048
  4. ONDANSETRON [Concomitant]
     Indication: PREMEDICATION
  5. PRANDIN [Concomitant]
  6. BACLOFEN [Concomitant]
     Route: 048
  7. IBUPROFEN [Concomitant]
     Route: 048
  8. JANUVIA [Concomitant]
  9. VITAMIN D3 [Concomitant]
     Route: 048
  10. FISH OIL [Concomitant]
  11. OMEPRAZOLE [Concomitant]
     Route: 048
  12. CITALOPRAM HYDROBROMIDE [Concomitant]
  13. SIMVASTATIN [Concomitant]
     Route: 048
  14. LUNESTA [Concomitant]

REACTIONS (3)
  - Depression [Unknown]
  - Hysterectomy [Unknown]
  - Oophorectomy [Unknown]
